FAERS Safety Report 8763956 (Version 1)
Quarter: 2012Q4

REPORT INFORMATION
  Report Type: Spontaneous
  Country: US (occurrence: None)
  Receive Date: 20120831
  Receipt Date: 20120831
  Transmission Date: 20130627
  Serious: Yes (Other)
  Sender: FDA-Public Use
  Company Number: None

PATIENT
  Age: 22 Year
  Sex: Female
  Weight: 90.72 kg

DRUGS (1)
  1. MIRENA [Suspect]
     Dates: start: 20080303, end: 20110918

REACTIONS (8)
  - Acne [None]
  - Weight increased [None]
  - Migraine [None]
  - Loss of libido [None]
  - Menstrual disorder [None]
  - Maternal exposure before pregnancy [None]
  - Abortion spontaneous [None]
  - Pregnancy [None]
